FAERS Safety Report 6868508-7 (Version None)
Quarter: 2010Q3

REPORT INFORMATION
  Report Type: 
  Country: None (occurrence: None)
  Receive Date: 20100722
  Receipt Date: 20080529
  Transmission Date: 20110219
  Serious: No
  Sender: FDA-Public Use
  Company Number: US-PFIZER INC-2008047015

PATIENT
  Age: 54 Year
  Sex: Female
  Weight: 68.181 kg

DRUGS (4)
  1. CHANTIX [Suspect]
     Indication: SMOKING CESSATION THERAPY
     Dates: start: 20080519
  2. METOPROLOL SUCCINATE [Concomitant]
     Indication: PALPITATIONS
  3. CRESTOR [Concomitant]
     Indication: BLOOD CHOLESTEROL
  4. CALCIUM [Concomitant]

REACTIONS (1)
  - NAUSEA [None]
